FAERS Safety Report 22098944 (Version 5)
Quarter: 2023Q4

REPORT INFORMATION
  Report Type: Report from Study
  Country: CA (occurrence: CA)
  Receive Date: 20230315
  Receipt Date: 20231220
  Transmission Date: 20240109
  Serious: Yes (Other)
  Sender: FDA-Public Use
  Company Number: CA-BAUSCH-BL-2023-003870

PATIENT
  Age: 66 Year
  Sex: Female
  Weight: 88.889 kg

DRUGS (4)
  1. CONTRAVE [Suspect]
     Active Substance: BUPROPION HYDROCHLORIDE\NALTREXONE HYDROCHLORIDE
     Indication: Weight control
     Dosage: 90/8 MG
     Route: 048
     Dates: start: 2022, end: 2022
  2. CONTRAVE [Suspect]
     Active Substance: BUPROPION HYDROCHLORIDE\NALTREXONE HYDROCHLORIDE
     Dosage: 90/8 MG 2TABS QAM, 2TABS QPM
     Route: 048
     Dates: start: 20221024, end: 202210
  3. CONTRAVE [Suspect]
     Active Substance: BUPROPION HYDROCHLORIDE\NALTREXONE HYDROCHLORIDE
     Dosage: 90/8 MG, 2TABS IN MORNING AND 1TAB AT SUPPER.
     Route: 048
     Dates: start: 20221031
  4. TYLENOL ARTHRITIS PAIN [Concomitant]
     Active Substance: ACETAMINOPHEN
     Indication: Arthritis
     Dosage: 1 IN 1 D
     Route: 048

REACTIONS (22)
  - Gastric ulcer haemorrhage [Not Recovered/Not Resolved]
  - Disease recurrence [Not Recovered/Not Resolved]
  - Haematochezia [Not Recovered/Not Resolved]
  - Hunger [Not Recovered/Not Resolved]
  - Sleep disorder due to general medical condition, insomnia type [Unknown]
  - Food aversion [Recovered/Resolved]
  - Apathy [Not Recovered/Not Resolved]
  - Glucose tolerance impaired [Unknown]
  - Abdominal distension [Unknown]
  - Arthritis [Not Recovered/Not Resolved]
  - Taste disorder [Not Recovered/Not Resolved]
  - Energy increased [Unknown]
  - Flatulence [Not Recovered/Not Resolved]
  - Constipation [Recovering/Resolving]
  - Nausea [Recovered/Resolved]
  - Dry mouth [Not Recovered/Not Resolved]
  - Insomnia [Not Recovered/Not Resolved]
  - Dizziness [Recovered/Resolved]
  - Abdominal pain upper [Not Recovered/Not Resolved]
  - Abdominal pain [Not Recovered/Not Resolved]
  - Therapeutic response unexpected [Unknown]
  - Patient dissatisfaction with treatment [Unknown]

NARRATIVE: CASE EVENT DATE: 20221003
